FAERS Safety Report 5049509-0 (Version None)
Quarter: 2006Q3

REPORT INFORMATION
  Report Type: 
  Country: None (occurrence: None)
  Receive Date: 20060711
  Receipt Date: 20060711
  Transmission Date: 20061208
  Serious: No
  Sender: FDA-Public Use
  Company Number: None

PATIENT
  Sex: Female
  Weight: 97.5234 kg

DRUGS (6)
  1. RESTASIS [Suspect]
     Indication: MEGACOLON
  2. RESTASIS [Suspect]
     Indication: PORPHYRIA
  3. RESTASIS [Suspect]
     Indication: SCOLIOSIS
  4. RESTASIS [Suspect]
     Indication: SICCA SYNDROME
  5. RESTASIS [Suspect]
     Indication: SPINA BIFIDA
  6. CONTRAST MEDIUM [Suspect]
     Indication: PORPHYRIA

REACTIONS (2)
  - MEDICATION TAMPERING [None]
  - PHARMACEUTICAL PRODUCT COUNTERFEIT [None]
